FAERS Safety Report 20386449 (Version 1)
Quarter: 2022Q1

REPORT INFORMATION
  Report Type: Spontaneous
  Country: US (occurrence: US)
  Receive Date: 20220127
  Receipt Date: 20220127
  Transmission Date: 20220423
  Serious: No
  Sender: FDA-Public Use
  Company Number: US-ALLERGAN-2142349US

PATIENT
  Sex: Female

DRUGS (1)
  1. BOTOX [Suspect]
     Active Substance: ONABOTULINUMTOXINA
     Indication: Migraine
     Dosage: 180 UNITS, SINGLE
     Dates: start: 20211130, end: 20211130

REACTIONS (4)
  - Influenza like illness [Unknown]
  - Abdominal pain upper [Unknown]
  - Neck pain [Unknown]
  - Migraine [Unknown]
